FAERS Safety Report 4334323-1 (Version None)
Quarter: 2004Q1

REPORT INFORMATION
  Report Type: 
  Country: None (occurrence: None)
  Receive Date: 20040329
  Receipt Date: 20031212
  Transmission Date: 20041129
  Serious: No
  Sender: FDA-Public Use
  Company Number: 03P-163-0244548-00

PATIENT
  Age: 53 Year
  Sex: Female

DRUGS (8)
  1. HUMIRA [Suspect]
     Indication: RHEUMATOID ARTHRITIS
     Dosage: 40 MG, 1 IN 2 WK, SUBCUTANEOUS
     Route: 058
     Dates: start: 20030101, end: 20030201
  2. HUMIRA [Suspect]
     Indication: RHEUMATOID ARTHRITIS
     Dosage: 40 MG, 1 IN 2 WK, SUBCUTANEOUS
     Route: 058
     Dates: start: 20030201, end: 20030501
  3. METHOTREXATE [Concomitant]
  4. SULFASALAZINE [Concomitant]
  5. METHYLPREDNISOLONE [Concomitant]
  6. PANTOPRAZOLE [Concomitant]
  7. ALBUTEROL SULFATE [Concomitant]
  8. FOLIC ACID [Concomitant]

REACTIONS (7)
  - ABDOMINAL DISTENSION [None]
  - COUGH [None]
  - DRUG INEFFECTIVE [None]
  - DYSPNOEA [None]
  - OEDEMA PERIPHERAL [None]
  - UPPER RESPIRATORY TRACT CONGESTION [None]
  - WHEEZING [None]
